FAERS Safety Report 19750484 (Version 1)
Quarter: 2021Q3

REPORT INFORMATION
  Report Type: Spontaneous
  Country: US (occurrence: US)
  Receive Date: 20210826
  Receipt Date: 20210826
  Transmission Date: 20211014
  Serious: No
  Sender: FDA-Public Use
  Company Number: US-TAKEDA-2021TUS051841

PATIENT
  Sex: Male

DRUGS (4)
  1. VYVANSE [Suspect]
     Active Substance: LISDEXAMFETAMINE DIMESYLATE
     Indication: DEPRESSION
     Dosage: UNK
     Route: 065
     Dates: end: 2021
  2. TERIFLUNOMIDE. [Suspect]
     Active Substance: TERIFLUNOMIDE
     Indication: DEPRESSION
  3. TERIFLUNOMIDE. [Suspect]
     Active Substance: TERIFLUNOMIDE
     Indication: MULTIPLE SCLEROSIS
     Dosage: 14 MILLIGRAM, QD
     Route: 048
     Dates: start: 20190615
  4. AMFETAMINE SULFATE [Suspect]
     Active Substance: AMPHETAMINE SULFATE
     Indication: DEPRESSION
     Dosage: UNK
     Route: 065
     Dates: start: 2021

REACTIONS (12)
  - Hyperhidrosis [Not Recovered/Not Resolved]
  - Fatigue [Not Recovered/Not Resolved]
  - Anger [Unknown]
  - Depression [Unknown]
  - Wrong technique in product usage process [Unknown]
  - Dizziness [Not Recovered/Not Resolved]
  - Headache [Not Recovered/Not Resolved]
  - Drug effect faster than expected [Not Recovered/Not Resolved]
  - Abdominal pain upper [Recovered/Resolved]
  - Memory impairment [Not Recovered/Not Resolved]
  - Insomnia [Unknown]
  - Anxiety [Recovering/Resolving]
